FAERS Safety Report 22349409 (Version 1)
Quarter: 2023Q2

REPORT INFORMATION
  Report Type: Spontaneous
  Country: US (occurrence: None)
  Receive Date: 20230519
  Receipt Date: 20230519
  Transmission Date: 20230721
  Serious: No
  Sender: FDA-Public Use
  Company Number: None

PATIENT
  Sex: Female

DRUGS (1)
  1. HUMIRA [Suspect]
     Active Substance: ADALIMUMAB
     Dosage: OTHER QUANTITY : 40MG/0.4ML;?FREQUENCY : EVERY OTHER WEEK;?
     Route: 058
     Dates: start: 20230118

REACTIONS (3)
  - Drug ineffective [None]
  - Pain [None]
  - Furuncle [None]
